FAERS Safety Report 25314409 (Version 1)
Quarter: 2025Q2

REPORT INFORMATION
  Report Type: Spontaneous
  Country: DE (occurrence: DE)
  Receive Date: 20250514
  Receipt Date: 20250514
  Transmission Date: 20250716
  Serious: Yes (Other)
  Sender: PFIZER
  Company Number: None

PATIENT
  Age: 88 Year
  Sex: Female
  Weight: 50 kg

DRUGS (5)
  1. METHOTREXATE SODIUM [Suspect]
     Active Substance: METHOTREXATE SODIUM
     Indication: Rheumatoid arthritis
     Dosage: 10 MG, WEEKLY
     Route: 058
     Dates: start: 20250220, end: 20250424
  2. NIFEDIPINE [Concomitant]
     Active Substance: NIFEDIPINE
     Indication: Emergency care
     Route: 048
  3. BISOPROLOL [Concomitant]
     Active Substance: BISOPROLOL
     Indication: Hypertension
     Dosage: 10 MG, 1X/DAY
  4. RAMIPRIL [Concomitant]
     Active Substance: RAMIPRIL
     Indication: Hypertension
     Dosage: 7.5 MG, 1X/DAY
  5. AMLODIPINE [Concomitant]
     Active Substance: AMLODIPINE BESYLATE
     Indication: Hypertension
     Dosage: 5 MG, 1X/DAY

REACTIONS (2)
  - Blood pressure increased [Recovered/Resolved]
  - Concomitant drug effect decreased [Recovered/Resolved]

NARRATIVE: CASE EVENT DATE: 20250411
